FAERS Safety Report 23998759 (Version 2)
Quarter: 2024Q2

REPORT INFORMATION
  Report Type: Spontaneous
  Country: US (occurrence: US)
  Receive Date: 20240621
  Receipt Date: 20240622
  Transmission Date: 20240715
  Serious: Yes (Other)
  Sender: FDA-Public Use
  Company Number: US-ABBVIE-5807956

PATIENT

DRUGS (3)
  1. ESTRADIOL [Suspect]
     Active Substance: ESTRADIOL
     Indication: Menopausal symptoms
     Dosage: 0.1 MG/GM,  USP 0.01%?FORM STRENGTH: 0.01 PERCENT
     Route: 067
  2. ESTRING [Suspect]
     Active Substance: ESTRADIOL
     Indication: Menopausal symptoms
     Dosage: 75/24HOUR RING?FREQUENCY TEXT: 3 MONTHS, 90 DAYS
     Route: 067
     Dates: start: 202311
  3. ESTRING [Suspect]
     Active Substance: ESTRADIOL
     Indication: Menopausal symptoms
     Dosage: 75/24HOUR RING?FREQUENCY TEXT: 3 MONTHS, 90 DAYS
     Route: 067
     Dates: start: 202401

REACTIONS (10)
  - Haemorrhage [Unknown]
  - Pruritus [Unknown]
  - Dyspareunia [Unknown]
  - Menopausal symptoms [Unknown]
  - Night sweats [Not Recovered/Not Resolved]
  - Pain [Unknown]
  - Hyperhidrosis [Unknown]
  - Vulvovaginal dryness [Recovering/Resolving]
  - Discomfort [Unknown]
  - Therapeutic response shortened [Unknown]

NARRATIVE: CASE EVENT DATE: 20240401
